FAERS Safety Report 22033655 (Version 1)
Quarter: 2023Q1

REPORT INFORMATION
  Report Type: Spontaneous
  Country: US (occurrence: None)
  Receive Date: 20230222
  Receipt Date: 20230222
  Transmission Date: 20230417
  Serious: Yes (Other)
  Sender: FDA-Public Use
  Company Number: None

PATIENT
  Age: 30 Year
  Sex: Female
  Weight: 51.75 kg

DRUGS (1)
  1. DEXTROAMPHETAMINE SACCHARATE [Suspect]
     Active Substance: DEXTROAMPHETAMINE SACCHARATE
     Indication: Attention deficit hyperactivity disorder
     Dosage: OTHER QUANTITY : 15 TABLET(S);?FREQUENCY : DAILY;?
     Route: 048
     Dates: start: 20230207

REACTIONS (3)
  - Product quality issue [None]
  - Product measured potency issue [None]
  - Sedation [None]

NARRATIVE: CASE EVENT DATE: 20230207
